FAERS Safety Report 5829432-1 (Version None)
Quarter: 2008Q3

REPORT INFORMATION
  Report Type: 
  Country: None (occurrence: None)
  Receive Date: 20080729
  Receipt Date: 20080715
  Transmission Date: 20090109
  Serious: Yes (Hospitalization)
  Sender: FDA-Public Use
  Company Number: 2008001670

PATIENT
  Age: 55 Year
  Sex: Female
  Weight: 66 kg

DRUGS (8)
  1. ERLOTINIB [Suspect]
     Indication: OVARIAN CANCER
     Dosage: (100 MG, QD), ORAL
     Route: 048
     Dates: start: 20080604
  2. IRINOTECAN (IRINOTECAN) (INJECTION FOR INFUSION) [Suspect]
     Dosage: (30 MG/M2, DAY 1 EVERY 21 DAYS), INTRAVENOUS
     Route: 042
     Dates: start: 20080604, end: 20080701
  3. AMLODIPINE [Concomitant]
  4. DOXAZOSIN (DOXAZOSIN) [Concomitant]
  5. LISINOPRIL [Concomitant]
  6. METOPROLOL TARTRATE [Concomitant]
  7. OXYCONTIN [Concomitant]
  8. PROTONIX [Concomitant]

REACTIONS (11)
  - ABDOMINAL PAIN [None]
  - ASPARTATE AMINOTRANSFERASE INCREASED [None]
  - BLOOD ALKALINE PHOSPHATASE INCREASED [None]
  - BLOOD BILIRUBIN INCREASED [None]
  - HAEMOGLOBIN DECREASED [None]
  - HYPONATRAEMIA [None]
  - NAUSEA [None]
  - PLATELET COUNT DECREASED [None]
  - PYREXIA [None]
  - VOMITING [None]
  - WHITE BLOOD CELL COUNT DECREASED [None]
